FAERS Safety Report 15623841 (Version 2)
Quarter: 2019Q1

REPORT INFORMATION
  Report Type: Spontaneous
  Country: IE (occurrence: IE)
  Receive Date: 20181115
  Receipt Date: 20190123
  Transmission Date: 20190417
  Serious: Yes (Other)
  Sender: FDA-Public Use
  Company Number: IE-AMGEN-IRLSP2018162376

PATIENT
  Age: 37 Year
  Sex: Female

DRUGS (1)
  1. ENBREL [Suspect]
     Active Substance: ETANERCEPT
     Indication: ARTHRITIS
     Dosage: UNK
     Route: 058
     Dates: start: 20160426

REACTIONS (3)
  - Product use in unapproved indication [Unknown]
  - Lower respiratory tract infection [Unknown]
  - Disease recurrence [Unknown]

NARRATIVE: CASE EVENT DATE: 20181107
